FAERS Safety Report 7767852-9 (Version None)
Quarter: 2011Q3

REPORT INFORMATION
  Report Type: 
  Country: None (occurrence: None)
  Receive Date: 20110922
  Receipt Date: 20110620
  Transmission Date: 20111222
  Serious: No
  Sender: FDA-Public Use
  Company Number: US-ASTRAZENECA-2011SE37456

PATIENT
  Age: 64 Year
  Sex: Female
  Weight: 61.2 kg

DRUGS (10)
  1. LEVOTHYROXINE SODIUM [Interacting]
     Route: 048
     Dates: start: 20110501
  2. SEROQUEL [Interacting]
     Indication: SUICIDAL IDEATION
     Route: 048
     Dates: start: 20110201
  3. ERGOCALCIFEROL [Concomitant]
     Indication: VITAMIN SUPPLEMENTATION
  4. TOPAMAX [Concomitant]
     Indication: WEIGHT ABNORMAL
     Dosage: DAILY
     Route: 048
  5. SEROQUEL [Suspect]
     Indication: DEPRESSION
     Route: 048
     Dates: start: 20110201
  6. SEROQUEL [Interacting]
     Indication: IMPULSIVE BEHAVIOUR
     Route: 048
     Dates: start: 20110201
  7. ATORVASTATIN CALCIUM [Concomitant]
     Indication: BLOOD CHOLESTEROL INCREASED
  8. LEVOTHYROXINE SODIUM [Interacting]
     Indication: HYPOTHYROIDISM
     Route: 048
     Dates: start: 20020101, end: 20110213
  9. LAMICTAL [Concomitant]
     Indication: DEPRESSION
     Dosage: DAILY
     Route: 048
  10. LEVOTHYROXINE SODIUM [Interacting]
     Route: 048
     Dates: start: 20110214, end: 20110401

REACTIONS (4)
  - HYPOAESTHESIA [None]
  - DRUG INTERACTION [None]
  - PRURITUS GENERALISED [None]
  - ALOPECIA [None]
